FAERS Safety Report 10715031 (Version 1)
Quarter: 2015Q1

REPORT INFORMATION
  Report Type: Spontaneous
  Country: US (occurrence: US)
  Receive Date: 20150115
  Receipt Date: 20150115
  Transmission Date: 20150721
  Serious: No
  Sender: FDA-Public Use
  Company Number: US-009507513-1501USA003629

PATIENT
  Sex: Male
  Weight: 88 kg

DRUGS (2)
  1. SYLATRON [Suspect]
     Active Substance: PEGINTERFERON ALFA-2B
     Dosage: 0.7 ML OF 444 MICROGRAM, QW
     Route: 058
  2. SYLATRON [Suspect]
     Active Substance: PEGINTERFERON ALFA-2B
     Dosage: 0.44 ML OF 264 MICROGRAM, QW
     Route: 058

REACTIONS (4)
  - Headache [Recovering/Resolving]
  - Incorrect dose administered [Recovered/Resolved]
  - Muscle tightness [Recovering/Resolving]
  - Fatigue [Recovering/Resolving]
